FAERS Safety Report 15999962 (Version 1)
Quarter: 2019Q1

REPORT INFORMATION
  Report Type: Spontaneous
  Country: US (occurrence: US)
  Receive Date: 20190129
  Receipt Date: 20190129
  Transmission Date: 20190418
  Serious: No
  Sender: FDA-Public Use
  Company Number: None

PATIENT
  Age: 13 Year
  Sex: Male

DRUGS (1)
  1. CUVITRU [Suspect]
     Active Substance: HUMAN IMMUNOGLOBULIN G
     Indication: HYPOGAMMAGLOBULINAEMIA
     Dosage: ?          OTHER STRENGTH:2GM / 10ML; 7NM?
     Route: 058
     Dates: start: 201706

REACTIONS (7)
  - Fatigue [None]
  - Therapy change [None]
  - Pyrexia [None]
  - Infectious mononucleosis [None]
  - Hypersensitivity [None]
  - Upper respiratory tract infection [None]
  - Pruritus [None]

NARRATIVE: CASE EVENT DATE: 20181124
